FAERS Safety Report 13290081 (Version 7)
Quarter: 2017Q3

REPORT INFORMATION
  Report Type: Spontaneous
  Country: KR (occurrence: KR)
  Receive Date: 20170303
  Receipt Date: 20170913
  Transmission Date: 20171127
  Serious: Yes (Hospitalization, Other)
  Sender: FDA-Public Use
  Company Number: KR-009507513-1703KOR000867

PATIENT
  Age: 64 Year
  Sex: Male
  Weight: 65.9 kg

DRUGS (28)
  1. ENDOXAN [Concomitant]
     Active Substance: CYCLOPHOSPHAMIDE
     Indication: BREAST CANCER MALE
     Dosage: 1080 MG, ONCE, CYCLE 1
     Route: 042
     Dates: start: 20170201, end: 20170201
  2. ENDOXAN [Concomitant]
     Active Substance: CYCLOPHOSPHAMIDE
     Dosage: 1105 MG, ONCE, CYCLE 3
     Route: 042
     Dates: start: 20170316, end: 20170316
  3. CARDIOXANE [Concomitant]
     Active Substance: DEXRAZOXANE HYDROCHLORIDE
     Dosage: 1000 MG, ONCE, CYCLE 3
     Route: 042
     Dates: start: 20170316, end: 20170316
  4. DOXORUBICIN HYDROCHLORIDE. [Concomitant]
     Active Substance: DOXORUBICIN HYDROCHLORIDE
     Indication: BREAST CANCER MALE
     Dosage: STRENGTH: 10MG/5ML, 108 MG, ONCE, CYCLE 1
     Route: 042
     Dates: start: 20170201, end: 20170201
  5. MACPERAN [Concomitant]
     Active Substance: METOCLOPRAMIDE HYDROCHLORIDE
     Indication: BREAST CANCER MALE
     Dosage: 10 MG, TID
     Route: 042
     Dates: start: 20170201, end: 20170201
  6. EMEND (FOSAPREPITANT DIMEGLUMINE) [Suspect]
     Active Substance: FOSAPREPITANT DIMEGLUMINE
     Dosage: 150 MG, ONCE
     Route: 042
     Dates: start: 20170223, end: 20170223
  7. ALOXI [Concomitant]
     Active Substance: PALONOSETRON HYDROCHLORIDE
     Dosage: 0.25 MG, ONCE, STRENGTH: 1.5 ML
     Route: 042
     Dates: start: 20170316, end: 20170316
  8. EMEND (FOSAPREPITANT DIMEGLUMINE) [Suspect]
     Active Substance: FOSAPREPITANT DIMEGLUMINE
     Dosage: 150 MG, ONCE
     Route: 042
     Dates: start: 20170316, end: 20170316
  9. DEXAMETHASONE SODIUM PHOSPHATE. [Concomitant]
     Active Substance: DEXAMETHASONE SODIUM PHOSPHATE
     Dosage: 10 MG, ONCE
     Route: 042
     Dates: start: 20170316, end: 20170316
  10. MACPERAN [Concomitant]
     Active Substance: METOCLOPRAMIDE HYDROCHLORIDE
     Dosage: 10 MG, TID
     Route: 042
     Dates: start: 20170223, end: 20170223
  11. DOXORUBICIN HYDROCHLORIDE. [Concomitant]
     Active Substance: DOXORUBICIN HYDROCHLORIDE
     Dosage: 110 MG, ONCE, CYCLE 3,  STRENGTH: 50MG/25ML
     Route: 042
     Dates: start: 20170316, end: 20170316
  12. DOXORUBICIN HYDROCHLORIDE. [Concomitant]
     Active Substance: DOXORUBICIN HYDROCHLORIDE
     Dosage: STRENGTH: 10MG/5ML, CYCLE: 4, 110 MG, ONCE
     Route: 042
     Dates: start: 20170406, end: 20170406
  13. ALOXI [Concomitant]
     Active Substance: PALONOSETRON HYDROCHLORIDE
     Dosage: STRENGTH: 1.5 ML, 0.25 MG, ONCE
     Route: 042
     Dates: start: 20170406, end: 20170406
  14. ENDOXAN [Concomitant]
     Active Substance: CYCLOPHOSPHAMIDE
     Dosage: 1100 MG, ONCE, CYCLE 2
     Route: 042
     Dates: start: 20170223, end: 20170223
  15. CARDIOXANE [Concomitant]
     Active Substance: DEXRAZOXANE HYDROCHLORIDE
     Dosage: 1000 MG, ONCE, CYCLE 4
     Route: 042
     Dates: start: 20170406, end: 20170406
  16. ALOXI [Concomitant]
     Active Substance: PALONOSETRON HYDROCHLORIDE
     Indication: BREAST CANCER MALE
     Dosage: 0.25 MG, ONCE, STRENGTH: 5ML
     Route: 042
     Dates: start: 20170201, end: 20170201
  17. MACPERAN [Concomitant]
     Active Substance: METOCLOPRAMIDE HYDROCHLORIDE
     Dosage: 10 MG, TID
     Route: 042
     Dates: start: 20170406, end: 20170406
  18. EMEND (FOSAPREPITANT DIMEGLUMINE) [Suspect]
     Active Substance: FOSAPREPITANT DIMEGLUMINE
     Dosage: 150 MG, ONCE
     Route: 042
     Dates: start: 20170406, end: 20170406
  19. ENDOXAN [Concomitant]
     Active Substance: CYCLOPHOSPHAMIDE
     Dosage: 1090 MG, ONCE, CYCLE 4
     Route: 042
     Dates: start: 20170406, end: 20170406
  20. CARDIOXANE [Concomitant]
     Active Substance: DEXRAZOXANE HYDROCHLORIDE
     Indication: BREAST CANCER MALE
     Dosage: 100 MG, ONCE, CYCLE 1
     Route: 042
     Dates: start: 20170201, end: 20170201
  21. DOXORUBICIN HYDROCHLORIDE. [Concomitant]
     Active Substance: DOXORUBICIN HYDROCHLORIDE
     Dosage: 110 MG, ONCE, CYCLE 2, STRENGTH: 50MG/25ML
     Route: 042
     Dates: start: 20170223, end: 20170223
  22. EMEND (FOSAPREPITANT DIMEGLUMINE) [Suspect]
     Active Substance: FOSAPREPITANT DIMEGLUMINE
     Indication: PROPHYLAXIS OF NAUSEA AND VOMITING
     Dosage: 150 MG, ONCE
     Route: 042
     Dates: start: 20170201, end: 20170201
  23. CARDIOXANE [Concomitant]
     Active Substance: DEXRAZOXANE HYDROCHLORIDE
     Dosage: 1000 MG, ONCE, CYCLE 2
     Route: 042
     Dates: start: 20170223, end: 20170223
  24. DEXAMETHASONE SODIUM PHOSPHATE. [Concomitant]
     Active Substance: DEXAMETHASONE SODIUM PHOSPHATE
     Indication: BREAST CANCER MALE
     Dosage: 10 MG, ONCE
     Route: 042
     Dates: start: 20170201, end: 20170201
  25. DEXAMETHASONE SODIUM PHOSPHATE. [Concomitant]
     Active Substance: DEXAMETHASONE SODIUM PHOSPHATE
     Dosage: 10 MG, ONCE, STRENGTH: 5MG/ML
     Route: 042
     Dates: start: 20170223, end: 20170223
  26. DEXAMETHASONE SODIUM PHOSPHATE. [Concomitant]
     Active Substance: DEXAMETHASONE SODIUM PHOSPHATE
     Dosage: 10 MG, ONCE
     Route: 042
     Dates: start: 20170406, end: 20170406
  27. ALOXI [Concomitant]
     Active Substance: PALONOSETRON HYDROCHLORIDE
     Dosage: 0.25 MG, ONCE, STRENGTH: 1.5 ML
     Route: 042
     Dates: start: 20170223, end: 20170223
  28. MACPERAN [Concomitant]
     Active Substance: METOCLOPRAMIDE HYDROCHLORIDE
     Dosage: 10 MG, TID
     Route: 042
     Dates: start: 20170316, end: 20170316

REACTIONS (4)
  - Red blood cell count decreased [Recovered/Resolved]
  - Drug ineffective [Unknown]
  - Leukopenia [Recovered/Resolved]
  - Platelet count decreased [Recovered/Resolved]

NARRATIVE: CASE EVENT DATE: 2017
